FAERS Safety Report 21403388 (Version 1)
Quarter: 2022Q4

REPORT INFORMATION
  Report Type: Spontaneous
  Country: KR (occurrence: KR)
  Receive Date: 20221003
  Receipt Date: 20221003
  Transmission Date: 20230113
  Serious: Yes (Death, Other)
  Sender: FDA-Public Use
  Company Number: KR-009507513-2209KOR010873

PATIENT
  Age: 56 Year
  Sex: Female

DRUGS (1)
  1. PREVYMIS [Suspect]
     Active Substance: LETERMOVIR
     Dosage: UNK
     Dates: start: 20201017, end: 20201018

REACTIONS (7)
  - Death [Fatal]
  - Acute respiratory distress syndrome [Unknown]
  - Cytomegalovirus infection reactivation [Unknown]
  - Cystitis haemorrhagic [Unknown]
  - Corynebacterium bacteraemia [Unknown]
  - Pericardial effusion [Unknown]
  - Generalised oedema [Unknown]

NARRATIVE: CASE EVENT DATE: 20201112
